FAERS Safety Report 9943161 (Version 1)
Quarter: 2014Q1

REPORT INFORMATION
  Report Type: Spontaneous
  Country: DE (occurrence: DE)
  Receive Date: 20140303
  Receipt Date: 20140303
  Transmission Date: 20141002
  Serious: Yes (Congenital Anomaly)
  Sender: FDA-Public Use
  Company Number: DE-TEVA-463797GER

PATIENT
  Age: 1 Day
  Sex: Male

DRUGS (4)
  1. SERTRALINE [Suspect]
     Route: 064
  2. LAMOTRIGINE [Suspect]
     Route: 064
  3. L-THYROXIN HENNING [Concomitant]
     Route: 064
  4. CORDES BPO 5 [Concomitant]
     Route: 064

REACTIONS (1)
  - Polydactyly [Recovered/Resolved]
